FAERS Safety Report 5069537-9 (Version None)
Quarter: 2006Q3

REPORT INFORMATION
  Report Type: 
  Country: None (occurrence: None)
  Receive Date: 20060731
  Receipt Date: 20060717
  Transmission Date: 20061208
  Serious: Yes (Hospitalization, Other)
  Sender: FDA-Public Use
  Company Number: 2006063298

PATIENT
  Age: 47 Year
  Sex: Male

DRUGS (3)
  1. BEXTRA [Suspect]
     Indication: DRUG USE FOR UNKNOWN INDICATION
     Dates: start: 20030801
  2. CLONIDINE [Concomitant]
  3. VIOXX [Concomitant]

REACTIONS (8)
  - BLOOD CHOLESTEROL INCREASED [None]
  - BLOOD PRESSURE FLUCTUATION [None]
  - GASTRIC DISORDER [None]
  - HYPERTENSION [None]
  - NERVE BLOCK [None]
  - PANCREATITIS [None]
  - THERAPY NON-RESPONDER [None]
  - THROMBOSIS [None]
